FAERS Safety Report 7397154-4 (Version None)
Quarter: 2011Q2

REPORT INFORMATION
  Report Type: 
  Country: None (occurrence: None)
  Receive Date: 20110406
  Receipt Date: 20110328
  Transmission Date: 20111010
  Serious: Yes (Life-Threatening)
  Sender: FDA-Public Use
  Company Number: B0708766A

PATIENT
  Sex: Male

DRUGS (4)
  1. PROPOFOL [Concomitant]
     Indication: ANAESTHESIA PROCEDURE
     Dosage: 3500MG PER DAY
     Route: 042
     Dates: start: 20090730, end: 20090730
  2. SUFENTA PRESERVATIVE FREE [Concomitant]
     Indication: ANAESTHESIA PROCEDURE
     Dosage: 125MG PER DAY
     Route: 042
     Dates: start: 20090730, end: 20090730
  3. NIMBEX [Concomitant]
     Indication: ANAESTHESIA PROCEDURE
     Dosage: 16MG SINGLE DOSE
     Route: 042
     Dates: start: 20090730, end: 20090730
  4. ZINNAT INJECTABLE [Suspect]
     Indication: ANAESTHESIA PROCEDURE
     Dosage: 1.5MG SINGLE DOSE
     Route: 042
     Dates: start: 20090730, end: 20090730

REACTIONS (2)
  - HYPOTENSION [None]
  - ANAPHYLACTIC SHOCK [None]
